FAERS Safety Report 5934903-3 (Version None)
Quarter: 2008Q4

REPORT INFORMATION
  Report Type: 
  Country: None (occurrence: None)
  Receive Date: 20081027
  Receipt Date: 20081020
  Transmission Date: 20090506
  Serious: Yes (Death)
  Sender: FDA-Public Use
  Company Number: US024890

PATIENT

DRUGS (1)
  1. TREANDA [Suspect]
     Dosage: 3 TIMES INTRAVENOU
     Route: 042

REACTIONS (1)
  - DEATH [None]
